FAERS Safety Report 11734052 (Version 1)
Quarter: 2015Q4

REPORT INFORMATION
  Report Type: Spontaneous
  Country: US (occurrence: None)
  Receive Date: 20151112
  Receipt Date: 20151112
  Transmission Date: 20160304
  Serious: Yes (Life-Threatening, Hospitalization, Disabling, Other)
  Sender: FDA-Public Use
  Company Number: None

PATIENT
  Age: 78 Year
  Sex: Male
  Weight: 70.31 kg

DRUGS (6)
  1. HALOPERIDOL LACTATE 5 MG UNKN [Suspect]
     Active Substance: HALOPERIDOL LACTATE
     Indication: DEMENTIA ALZHEIMER^S TYPE
     Dosage: 1 MG, EVERY 4-6 HRS
     Route: 030
     Dates: start: 20140811, end: 20140922
  2. MULTI-VITAMIN WITH MINERALS [Concomitant]
  3. SIMVASTATIN. [Concomitant]
     Active Substance: SIMVASTATIN
  4. 81 MG ASPIRIN [Concomitant]
  5. VITAMIN C 1,000 MG [Concomitant]
  6. VIT D3 1000 IU [Concomitant]

REACTIONS (11)
  - Activities of daily living impaired [None]
  - Drooling [None]
  - Tremor [None]
  - Incontinence [None]
  - Hypotension [None]
  - Muscle contracture [None]
  - Miosis [None]
  - Muscle rigidity [None]
  - Speech disorder [None]
  - Seizure [None]
  - Tongue disorder [None]

NARRATIVE: CASE EVENT DATE: 20140915
